FAERS Safety Report 17200989 (Version 1)
Quarter: 2019Q4

REPORT INFORMATION
  Report Type: Report from Study
  Country: CA (occurrence: CA)
  Receive Date: 20191226
  Receipt Date: 20191226
  Transmission Date: 20200122
  Serious: Yes (Other)
  Sender: FDA-Public Use
  Company Number: CA-ROCHE-2505702

PATIENT
  Age: 61 Year
  Sex: Female

DRUGS (11)
  1. VIT D [Concomitant]
     Active Substance: VITAMIN D NOS
  2. SULFASALAZINE. [Concomitant]
     Active Substance: SULFASALAZINE
  3. CANNABIS SATIVA OIL [Concomitant]
     Active Substance: CANNABIS SATIVA SUBSP. INDICA TOP
  4. HYDROXYCHLOROQUINE [Concomitant]
     Active Substance: HYDROXYCHLOROQUINE
  5. OMEGA 3 [DOCOSAHEXAENOIC ACID;EICOSAPENTAENOIC ACID] [Concomitant]
     Active Substance: DOCONEXENT\ICOSAPENT
  6. HYLO [Concomitant]
  7. VITAMIN C [Concomitant]
     Active Substance: ASCORBIC ACID
  8. TURMERIC [CURCUMA LONGA] [Concomitant]
     Active Substance: HERBALS\TURMERIC
  9. RITUXAN [Suspect]
     Active Substance: RITUXIMAB
     Indication: RHEUMATOID ARTHRITIS
     Dosage: ONGOING,NO PIR AVAILABLE
     Route: 065
     Dates: start: 20181206
  10. RESTASIS [Concomitant]
     Active Substance: CYCLOSPORINE
  11. NAPROXEN. [Concomitant]
     Active Substance: NAPROXEN

REACTIONS (5)
  - Musculoskeletal stiffness [Unknown]
  - Blood creatinine decreased [Unknown]
  - Blood immunoglobulin M decreased [Unknown]
  - Blood cholesterol increased [Unknown]
  - Mean cell volume increased [Unknown]

NARRATIVE: CASE EVENT DATE: 20191118
